FAERS Safety Report 11629361 (Version 3)
Quarter: 2016Q1

REPORT INFORMATION
  Report Type: Report from Study
  Country: JP (occurrence: JP)
  Receive Date: 20151014
  Receipt Date: 20160218
  Transmission Date: 20160525
  Serious: Yes (Death)
  Sender: FDA-Public Use
  Company Number: JP-PFIZER INC-2015340203

PATIENT
  Age: 83 Year
  Sex: Male
  Weight: 75 kg

DRUGS (5)
  1. VANCOMYCIN [Concomitant]
     Active Substance: VANCOMYCIN
     Indication: CLOSTRIDIUM DIFFICILE INFECTION
     Dosage: UNK
     Route: 048
     Dates: start: 20150813
  2. NOREPINEPHRINE [Concomitant]
     Active Substance: NOREPINEPHRINE\NOREPINEPHRINE BITARTRATE
     Indication: SHOCK
     Dosage: UNK
     Route: 042
     Dates: start: 20150813
  3. PITRESSIN [Concomitant]
     Active Substance: VASOPRESSIN
     Indication: SHOCK
     Dosage: UNK
     Route: 042
     Dates: start: 20150813
  4. ANAEMETRO [Suspect]
     Active Substance: METRONIDAZOLE
     Indication: ENTERITIS INFECTIOUS
     Dosage: 500 MG, UNK
     Dates: start: 20150813
  5. VENOGLOBULIN [Concomitant]
     Active Substance: HUMAN IMMUNOGLOBULIN G
     Indication: SEPTIC SHOCK
     Dosage: UNK
     Route: 042
     Dates: start: 20150813

REACTIONS (1)
  - Clostridium difficile infection [Fatal]

NARRATIVE: CASE EVENT DATE: 20150813
